FAERS Safety Report 18128935 (Version 2)
Quarter: 2020Q3

REPORT INFORMATION
  Report Type: Spontaneous
  Country: US (occurrence: US)
  Receive Date: 20200810
  Receipt Date: 20200811
  Transmission Date: 20201103
  Serious: No
  Sender: FDA-Public Use
  Company Number: US-PFIZER INC-2020300782

PATIENT
  Age: 44 Year
  Sex: Female
  Weight: 56.7 kg

DRUGS (2)
  1. DOFETILIDE. [Suspect]
     Active Substance: DOFETILIDE
     Indication: ATRIAL FIBRILLATION
     Dosage: 250 UG, 2X/DAY
     Route: 048
     Dates: start: 20200120
  2. LEXAPRO [Concomitant]
     Active Substance: ESCITALOPRAM OXALATE
     Dosage: 10 MG, DAILY

REACTIONS (13)
  - Pain in extremity [Unknown]
  - Tension [Unknown]
  - Disease recurrence [Unknown]
  - Headache [Unknown]
  - Malaise [Unknown]
  - Back pain [Unknown]
  - Pyrexia [Unknown]
  - Somnolence [Unknown]
  - Fatigue [Unknown]
  - Insomnia [Unknown]
  - Abdominal discomfort [Unknown]
  - Loss of personal independence in daily activities [Unknown]
  - Memory impairment [Unknown]
